FAERS Safety Report 6460230-4 (Version None)
Quarter: 2009Q4

REPORT INFORMATION
  Report Type: 
  Country: None (occurrence: None)
  Receive Date: 20091130
  Receipt Date: 20091118
  Transmission Date: 20100525
  Serious: Yes (Other)
  Sender: FDA-Public Use
  Company Number: US-RB-025836-09

PATIENT
  Age: 4 Year
  Sex: Male
  Weight: 15.3 kg

DRUGS (1)
  1. DELSYM ADULT COUGH SYRUP [Suspect]
     Indication: COUGH
     Dosage: CONSUMED A QUATER TEASPOON OF THE PRODUCT
     Route: 048
     Dates: start: 20091113

REACTIONS (3)
  - ACCIDENTAL DRUG INTAKE BY CHILD [None]
  - CHOKING [None]
  - DYSPNOEA [None]
